FAERS Safety Report 12704857 (Version 2)
Quarter: 2016Q4

REPORT INFORMATION
  Report Type: Spontaneous
  Country: US (occurrence: US)
  Receive Date: 20160831
  Receipt Date: 20161014
  Transmission Date: 20170207
  Serious: Yes (Hospitalization, Other)
  Sender: FDA-Public Use
  Company Number: US-BAYER-2016-169024

PATIENT
  Age: 55 Year
  Sex: Female

DRUGS (2)
  1. BETASERON [Suspect]
     Active Substance: INTERFERON BETA-1B
     Indication: MULTIPLE SCLEROSIS
     Dosage: UNK
     Dates: start: 20110328, end: 20160915
  2. BETASERON [Suspect]
     Active Substance: INTERFERON BETA-1B
     Indication: MULTIPLE SCLEROSIS
     Dosage: 0.25 MG, QOD
     Route: 058
     Dates: start: 20090211

REACTIONS (7)
  - Musculoskeletal stiffness [None]
  - Drug dose omission [None]
  - Parvovirus infection [Recovered/Resolved]
  - Immunosuppression [None]
  - Diplegia [None]
  - Malaise [None]
  - Joint stiffness [None]

NARRATIVE: CASE EVENT DATE: 201508
